FAERS Safety Report 8458696-3 (Version None)
Quarter: 2012Q2

REPORT INFORMATION
  Report Type: 
  Country: None (occurrence: None)
  Receive Date: 20120622
  Receipt Date: 20120618
  Transmission Date: 20120825
  Serious: Yes (Hospitalization, Other)
  Sender: FDA-Public Use
  Company Number: US-PFIZER INC-2007033580

PATIENT
  Sex: Female
  Weight: 91.4 kg

DRUGS (8)
  1. SOLU-MEDROL [Concomitant]
  2. PEPCID [Concomitant]
     Dates: start: 20070322
  3. ZYVOX [Suspect]
     Indication: URINARY TRACT INFECTION
     Dosage: 600 MG, 2X/DAY, Q12 HRS
     Dates: start: 20070327
  4. ARGATROBAN [Interacting]
     Indication: HEPARIN-INDUCED THROMBOCYTOPENIA
     Dosage: 2 MCG/KG/MIN,WITH FREQUENT TITRATION
     Route: 042
     Dates: start: 20070325
  5. WARFARIN SODIUM [Concomitant]
     Dates: start: 20070322
  6. ARGATROBAN [Interacting]
     Dosage: UNK
     Route: 042
     Dates: end: 20070331
  7. IMMUNE GLOBULIN NOS [Concomitant]
     Route: 042
     Dates: start: 20070322, end: 20070324
  8. FRAGMIN [Concomitant]
     Dates: start: 20070306, end: 20070325

REACTIONS (2)
  - COAGULATION TIME ABNORMAL [None]
  - DRUG INTERACTION [None]
